FAERS Safety Report 9742611 (Version 1)
Quarter: 2013Q4

REPORT INFORMATION
  Report Type: Spontaneous
  Country: US (occurrence: US)
  Receive Date: 20131210
  Receipt Date: 20131210
  Transmission Date: 20140711
  Serious: No
  Sender: FDA-Public Use
  Company Number: US-GILEAD-2009-0024621

PATIENT
  Sex: Female

DRUGS (12)
  1. LETAIRIS [Suspect]
     Indication: PULMONARY ARTERIAL HYPERTENSION
     Route: 048
     Dates: start: 20090527
  2. LEVOTHYROXINE [Concomitant]
  3. FUROSEMIDE [Concomitant]
  4. AMLODIPINE BESYLATE [Concomitant]
  5. FAMOTIDINE [Concomitant]
  6. DOCUSATE SOD [Concomitant]
  7. WARFARIN [Concomitant]
  8. METOPROLOL TARTRATE [Concomitant]
  9. ADULT ASPIRIN [Concomitant]
  10. MULTIVITAMINS [Concomitant]
  11. POTASSIUM CHLORIDE [Concomitant]
  12. OXYGEN [Concomitant]

REACTIONS (1)
  - Feeling cold [Unknown]
